FAERS Safety Report 5574410-3 (Version None)
Quarter: 2007Q4

REPORT INFORMATION
  Report Type: 
  Country: None (occurrence: None)
  Receive Date: 20071221
  Receipt Date: 20071213
  Transmission Date: 20080405
  Serious: Yes (Hospitalization)
  Sender: FDA-Public Use
  Company Number: TPA2007A02505

PATIENT
  Sex: Female

DRUGS (1)
  1. ROZEREM [Suspect]
     Indication: SLEEP DISORDER
     Dosage: QHS, PER ORAL
     Route: 048

REACTIONS (3)
  - DRUG EFFECT DECREASED [None]
  - INITIAL INSOMNIA [None]
  - OVERDOSE [None]
